FAERS Safety Report 11113024 (Version 1)
Quarter: 2015Q2

REPORT INFORMATION
  Report Type: Spontaneous
  Country: IT (occurrence: IT)
  Receive Date: 20150514
  Receipt Date: 20150514
  Transmission Date: 20150821
  Serious: Yes (Life-Threatening, Hospitalization, Other)
  Sender: FDA-Public Use
  Company Number: IT-BAXTER-2015BAX005962

PATIENT
  Age: 54 Year
  Sex: Female

DRUGS (10)
  1. ENDOXAN BAXTER [Suspect]
     Active Substance: CYCLOPHOSPHAMIDE
     Indication: BREAST CANCER
     Route: 042
     Dates: start: 20141017, end: 20141107
  2. ALOXI [Concomitant]
     Active Substance: PALONOSETRON HYDROCHLORIDE
     Indication: PROPHYLAXIS OF NAUSEA AND VOMITING
     Route: 042
     Dates: start: 20141107, end: 20141107
  3. EMEND [Concomitant]
     Active Substance: APREPITANT
     Indication: PROPHYLAXIS OF NAUSEA AND VOMITING
     Route: 048
     Dates: start: 20141107, end: 20141109
  4. DESAMETASONE [Concomitant]
     Active Substance: DEXAMETHASONE
     Indication: PRODUCT USED FOR UNKNOWN INDICATION
     Route: 042
     Dates: start: 20141107, end: 20141107
  5. EUTIROX [Concomitant]
     Active Substance: LEVOTHYROXINE SODIUM
     Indication: PRODUCT USED FOR UNKNOWN INDICATION
     Route: 048
  6. RANITIDINE [Concomitant]
     Active Substance: RANITIDINE\RANITIDINE HYDROCHLORIDE
     Indication: PRODUCT USED FOR UNKNOWN INDICATION
     Route: 042
     Dates: start: 20141107, end: 20141107
  7. OMEPRAZOLE. [Concomitant]
     Active Substance: OMEPRAZOLE
     Indication: PRODUCT USED FOR UNKNOWN INDICATION
     Route: 048
  8. EPIRUBICINA CLORIDRATO [Suspect]
     Active Substance: EPIRUBICIN
     Indication: BREAST CANCER
     Route: 042
     Dates: start: 20141017, end: 20141107
  9. LONQUEX [Concomitant]
     Active Substance: LIPEGFILGRASTIM
     Indication: PRODUCT USED FOR UNKNOWN INDICATION
     Route: 058
     Dates: start: 20141107, end: 20141107
  10. FLUOROURACILE [Suspect]
     Active Substance: FLUOROURACIL
     Indication: BREAST CANCER
     Route: 042
     Dates: start: 20141017, end: 20141107

REACTIONS (6)
  - Leukocytosis [Unknown]
  - Pancytopenia [Recovered/Resolved with Sequelae]
  - Enteritis [Recovered/Resolved with Sequelae]
  - Colitis [Recovered/Resolved with Sequelae]
  - Septic shock [Recovered/Resolved with Sequelae]
  - Epistaxis [Unknown]

NARRATIVE: CASE EVENT DATE: 20141115
